FAERS Safety Report 11614091 (Version 3)
Quarter: 2016Q3

REPORT INFORMATION
  Report Type: Report from Study
  Country: FR (occurrence: FR)
  Receive Date: 20151008
  Receipt Date: 20160825
  Transmission Date: 20161109
  Serious: Yes (Hospitalization, Other)
  Sender: FDA-Public Use
  Company Number: FR-ABBVIE-15P-056-1451074-00

PATIENT
  Age: 47 Year
  Sex: Female
  Weight: 66 kg

DRUGS (7)
  1. CLOZAPINE. [Concomitant]
     Active Substance: CLOZAPINE
     Indication: PROPHYLAXIS
  2. AMANTADINE [Concomitant]
     Active Substance: AMANTADINE
     Indication: PARKINSON^S DISEASE
     Route: 048
     Dates: start: 2000
  3. DUODOPA [Suspect]
     Active Substance: CARBIDOPA\LEVODOPA
     Indication: PARKINSON^S DISEASE
     Dosage: 10MG/HOUR
     Route: 050
     Dates: start: 20150717, end: 20150804
  4. DUODOPA [Suspect]
     Active Substance: CARBIDOPA\LEVODOPA
     Dosage: 12MG/H
     Route: 050
     Dates: start: 201507, end: 20160615
  5. NEUPRO [Concomitant]
     Active Substance: ROTIGOTINE
     Indication: PARKINSON^S DISEASE
     Route: 062
     Dates: start: 2014
  6. DOMPERIDONE [Concomitant]
     Active Substance: DOMPERIDONE
     Indication: PARKINSON^S DISEASE
     Route: 048
  7. CLOZAPINE. [Concomitant]
     Active Substance: CLOZAPINE
     Indication: PSYCHOTIC DISORDER
     Dosage: 1/4 OF TABLET DF
     Route: 048
     Dates: start: 2014

REACTIONS (14)
  - Dyskinesia [Recovering/Resolving]
  - Stoma site discharge [Recovering/Resolving]
  - Abdominal wall abscess [Recovering/Resolving]
  - Device issue [Recovering/Resolving]
  - Abdominal rigidity [Recovering/Resolving]
  - Abdominal pain [Recovering/Resolving]
  - Musculoskeletal pain [Unknown]
  - Device dislocation [Recovered/Resolved]
  - Stoma site erythema [Recovered/Resolved]
  - Spinal pain [Unknown]
  - Stoma site infection [Recovering/Resolving]
  - Stoma site discharge [Recovered/Resolved]
  - Abdominal distension [Recovering/Resolving]
  - Pain [Recovering/Resolving]

NARRATIVE: CASE EVENT DATE: 20150803
